FAERS Safety Report 8773053 (Version 2)
Quarter: 2012Q4

REPORT INFORMATION
  Report Type: 
  Country: ES (occurrence: ES)
  Receive Date: 20120907
  Receipt Date: 20120922
  Transmission Date: 20130627
  Serious: Yes (Hospitalization)
  Sender: FDA-Public Use
  Company Number: ES-ABBOTT-12P-144-0974337-00

PATIENT
  Age: 42 Year
  Sex: Male

DRUGS (3)
  1. KALETRA [Suspect]
     Indication: HIV INFECTION
     Route: 048
     Dates: start: 2007, end: 20100729
  2. PRAVASTATINE [Suspect]
     Indication: DYSLIPIDAEMIA
     Dates: end: 20100729
  3. METHADONE [Concomitant]
     Indication: DRUG WITHDRAWAL MAINTENANCE THERAPY
     Dates: start: 1997

REACTIONS (4)
  - Renal failure acute [Recovered/Resolved]
  - Rhabdomyolysis [Recovered/Resolved with Sequelae]
  - Asthenia [Unknown]
  - Pain in extremity [Unknown]
